FAERS Safety Report 14574313 (Version 1)
Quarter: 2018Q1

REPORT INFORMATION
  Report Type: Report from Study
  Country: RU (occurrence: RU)
  Receive Date: 20180226
  Receipt Date: 20180226
  Transmission Date: 20180509
  Serious: Yes (Other)
  Sender: FDA-Public Use
  Company Number: RU-ALEXION PHARMACEUTICALS INC.-A201801223

PATIENT
  Age: 8 Year
  Sex: Male

DRUGS (1)
  1. ASFOTASE ALFA [Suspect]
     Active Substance: ASFOTASE ALFA
     Indication: HYPOPHOSPHATASIA
     Dosage: 2 MG/KG, Q3W
     Route: 065
     Dates: start: 20170113

REACTIONS (2)
  - Dermatitis allergic [Recovering/Resolving]
  - Blood immunoglobulin E increased [Not Recovered/Not Resolved]

NARRATIVE: CASE EVENT DATE: 20180131
